FAERS Safety Report 5937395-3 (Version None)
Quarter: 2008Q4

REPORT INFORMATION
  Report Type: 
  Country: None (occurrence: None)
  Receive Date: 20081031
  Receipt Date: 20081027
  Transmission Date: 20090506
  Serious: Yes (Hospitalization)
  Sender: FDA-Public Use
  Company Number: US-WATSON-2008-03263

PATIENT
  Sex: Male

DRUGS (2)
  1. FENTANYL-75 (WATSON LABORATORIES) [Suspect]
     Indication: DRUG USE FOR UNKNOWN INDICATION
     Dosage: 1 PATCH Q 72 HOURS
     Route: 062
  2. FENTANYL-75 (WATSON LABORATORIES) [Suspect]
     Dosage: 1 PATCH Q 72 HOURS
     Route: 062

REACTIONS (12)
  - ACCIDENTAL EXPOSURE [None]
  - CYANOSIS [None]
  - DIZZINESS [None]
  - DRUG EFFECT INCREASED [None]
  - DRUG INEFFECTIVE [None]
  - DYSPNOEA [None]
  - MEMORY IMPAIRMENT [None]
  - MENTAL IMPAIRMENT [None]
  - PAIN [None]
  - RESPIRATORY ARREST [None]
  - TREMOR [None]
  - WITHDRAWAL SYNDROME [None]
